FAERS Safety Report 5477782-3 (Version None)
Quarter: 2007Q4

REPORT INFORMATION
  Report Type: 
  Country: None (occurrence: None)
  Receive Date: 20071002
  Receipt Date: 20070928
  Transmission Date: 20080405
  Serious: Yes (Death, Hospitalization)
  Sender: FDA-Public Use
  Company Number: VISP-NO-0709S-0429

PATIENT
  Age: 80 Year
  Sex: Male

DRUGS (13)
  1. VISIPAQUE [Suspect]
     Indication: LUNG NEOPLASM MALIGNANT
     Dosage: 120 ML SINGLE DOSE, I.V.
     Route: 042
     Dates: start: 20070918, end: 20070918
  2. TRIFLUSAL [Concomitant]
  3. IBUPROFEN [Concomitant]
  4. IPRATROPIO BROMIDE [Concomitant]
  5. PHENTANILE (FENTANYL) [Concomitant]
  6. OMEPRAZOLE [Concomitant]
  7. SALBUTAMOL [Concomitant]
  8. BUDESONIDE [Concomitant]
  9. ACETAMINOPHEN [Concomitant]
  10. TAMSULINE IUROLOSIN) [Concomitant]
  11. FENTANILE (DUROGESIC) [Concomitant]
  12. FUROSEMIDE [Concomitant]
  13. MEGLUMINE AMIDOTRIZOATE AND SODIUM AMIDOTRIZOATE (GASTROGRAFIN) [Concomitant]

REACTIONS (10)
  - ABDOMINAL PAIN [None]
  - DIARRHOEA [None]
  - DYSPEPSIA [None]
  - HEPATIC FAILURE [None]
  - HYPOTENSION [None]
  - MALAISE [None]
  - PYREXIA [None]
  - RENAL FAILURE [None]
  - RHABDOMYOLYSIS [None]
  - VOMITING [None]
